FAERS Safety Report 10309050 (Version 1)
Quarter: 2014Q3

REPORT INFORMATION
  Report Type: Spontaneous
  Country: US (occurrence: US)
  Receive Date: 20140716
  Receipt Date: 20140716
  Transmission Date: 20150326
  Serious: No
  Sender: FDA-Public Use
  Company Number: US-MYLANLABS-2014S1012110

PATIENT
  Sex: Female

DRUGS (1)
  1. FENOFIBRIC ACID DELAYED-RELEASE CAPSULES [Suspect]
     Active Substance: FENOFIBRIC ACID

REACTIONS (3)
  - Urticaria [Not Recovered/Not Resolved]
  - Reaction to drug excipients [Not Recovered/Not Resolved]
  - Urinary tract infection [Not Recovered/Not Resolved]

NARRATIVE: CASE EVENT DATE: 201307
